FAERS Safety Report 25640112 (Version 1)
Quarter: 2025Q3

REPORT INFORMATION
  Report Type: Spontaneous
  Country: JP (occurrence: JP)
  Receive Date: 20250804
  Receipt Date: 20250804
  Transmission Date: 20251021
  Serious: Yes (Other)
  Sender: MERCK SHARP & DOHME LLC
  Company Number: JP-009507513-2315090

PATIENT
  Age: 9 Decade
  Sex: Male

DRUGS (1)
  1. KEYTRUDA [Suspect]
     Active Substance: PEMBROLIZUMAB
     Indication: Lung neoplasm malignant
     Route: 065

REACTIONS (5)
  - Polychondritis [Unknown]
  - Productive cough [Unknown]
  - Pyrexia [Unknown]
  - Hypopharyngeal cancer [Unknown]
  - Cough [Unknown]

NARRATIVE: CASE EVENT DATE: 20220101
